FAERS Safety Report 18496702 (Version 1)
Quarter: 2020Q4

REPORT INFORMATION
  Report Type: Spontaneous
  Country: BR (occurrence: BR)
  Receive Date: 20201112
  Receipt Date: 20201112
  Transmission Date: 20210114
  Serious: No
  Sender: FDA-Public Use
  Company Number: None

PATIENT
  Age: 39 Year
  Sex: Male
  Weight: 120 kg

DRUGS (5)
  1. ESCITAOPRAM [Concomitant]
     Active Substance: ESCITALOPRAM OXALATE
  2. VIT D [Concomitant]
     Active Substance: VITAMIN D NOS
  3. VENVANSE [Concomitant]
     Active Substance: LISDEXAMFETAMINE DIMESYLATE
  4. LITHIUM. [Concomitant]
     Active Substance: LITHIUM
  5. VENVANSE [Suspect]
     Active Substance: LISDEXAMFETAMINE DIMESYLATE
     Indication: ATTENTION DEFICIT HYPERACTIVITY DISORDER
     Dosage: ?          QUANTITY:28 CAPSULE(S);?
     Route: 048
     Dates: start: 20200228, end: 20201112

REACTIONS (7)
  - Tachycardia [None]
  - Somnolence [None]
  - Therapeutic product effect decreased [None]
  - Fatigue [None]
  - Disturbance in attention [None]
  - Decreased appetite [None]
  - Drug ineffective [None]

NARRATIVE: CASE EVENT DATE: 20200615
